FAERS Safety Report 8909231 (Version 1)
Quarter: 2012Q4

REPORT INFORMATION
  Report Type: Spontaneous
  Country: DK (occurrence: None)
  Receive Date: 20121107
  Receipt Date: 20121107
  Transmission Date: 20130627
  Serious: Yes (Other)
  Sender: FDA-Public Use
  Company Number: 2012MA012977

PATIENT
  Age: 18 Year
  Sex: Female

DRUGS (1)
  1. MIRTAZAPINE TABLETS [Suspect]
     Indication: DEPRESSION SUICIDAL
     Route: 048
     Dates: start: 20110501, end: 20110801

REACTIONS (1)
  - Restless legs syndrome [None]
